FAERS Safety Report 15274112 (Version 1)
Quarter: 2018Q4

REPORT INFORMATION
  Report Type: Spontaneous
  Country: JP (occurrence: JP)
  Receive Date: 20180814
  Receipt Date: 20180814
  Transmission Date: 20190204
  Serious: Yes (Hospitalization)
  Sender: FDA-Public Use
  Company Number: JP-ORPHAN EUROPE-2053667

PATIENT
  Age: 16 Month
  Sex: Male

DRUGS (5)
  1. HYCOBAL [Concomitant]
     Route: 048
  2. CYSTADANE [Suspect]
     Active Substance: BETAINE
     Route: 048
     Dates: start: 20161213, end: 20171211
  3. FRESMIN [Concomitant]
     Active Substance: HYDROXOCOBALAMIN
     Route: 050
  4. LEUCOVORIN. [Concomitant]
     Active Substance: LEUCOVORIN
     Route: 048
  5. CYSTADANE [Suspect]
     Active Substance: BETAINE
     Route: 048
     Dates: start: 20171212

REACTIONS (2)
  - Pyrexia [Recovered/Resolved]
  - Nasopharyngitis [Unknown]

NARRATIVE: CASE EVENT DATE: 20180403
